FAERS Safety Report 9733178 (Version 2)
Quarter: 2014Q1

REPORT INFORMATION
  Report Type: Spontaneous
  Country: US (occurrence: US)
  Receive Date: 20131205
  Receipt Date: 20140311
  Transmission Date: 20141002
  Serious: No
  Sender: FDA-Public Use
  Company Number: US-009507513-1312USA002557

PATIENT
  Age: 61 Year
  Sex: Female
  Weight: 136.5 kg

DRUGS (6)
  1. OXYTROL FOR WOMEN [Suspect]
     Indication: URINARY INCONTINENCE
     Dosage: UNK, UNKNOWN
     Route: 062
     Dates: start: 20131101, end: 20131104
  2. METOPROLOL [Concomitant]
     Indication: BLOOD PRESSURE
     Dosage: UNK, UNKNOWN
  3. LASIX (FUROSEMIDE SODIUM) [Concomitant]
     Indication: TINNITUS
     Dosage: 20 MG, UNKNOWN
  4. EVISTA [Concomitant]
     Indication: OSTEOPENIA
     Dosage: UNK, UNKNOWN
  5. EVISTA [Concomitant]
     Indication: NEOPLASM PROPHYLAXIS
  6. POTASSIUM CHLORIDE [Concomitant]
     Indication: BLOOD POTASSIUM DECREASED
     Dosage: 30 MG, UNKNOWN

REACTIONS (3)
  - Hypersensitivity [Recovered/Resolved]
  - Application site pruritus [Recovered/Resolved]
  - Application site erythema [Recovered/Resolved]
